FAERS Safety Report 8412130-8 (Version None)
Quarter: 2012Q2

REPORT INFORMATION
  Report Type: 
  Country: None (occurrence: None)
  Receive Date: 20120605
  Receipt Date: 20120508
  Transmission Date: 20120825
  Serious: No
  Sender: FDA-Public Use
  Company Number: US-AMGEN-USASP2012012164

PATIENT
  Age: 54 Year
  Sex: Female
  Weight: 87.528 kg

DRUGS (2)
  1. ENBREL [Suspect]
     Indication: RHEUMATOID ARTHRITIS
  2. ENBREL [Suspect]
     Indication: EAR DISORDER
     Dosage: 50 MG, QWK
     Dates: start: 20100101, end: 20110101

REACTIONS (3)
  - RHINORRHOEA [None]
  - SINUS DISORDER [None]
  - NASOPHARYNGITIS [None]
